FAERS Safety Report 9526398 (Version 1)
Quarter: 2013Q3

REPORT INFORMATION
  Report Type: Spontaneous
  Country: US (occurrence: US)
  Receive Date: 20130916
  Receipt Date: 20130916
  Transmission Date: 20140515
  Serious: Yes (Other)
  Sender: FDA-Public Use
  Company Number: US-MYLANLABS-2013S1019913

PATIENT
  Age: 18 Day
  Sex: Male

DRUGS (3)
  1. ENALAPRIL [Suspect]
     Indication: DECREASED VENTRICULAR AFTERLOAD
     Dosage: 0.05 MG/KG/DOSE
     Route: 048
  2. FUROSEMIDE [Suspect]
     Indication: POLYURIA
     Route: 065
  3. SPIRONOLACTONE [Suspect]
     Indication: POLYURIA
     Route: 065

REACTIONS (3)
  - Renal failure acute [Recovered/Resolved]
  - Hypotension [Recovered/Resolved]
  - Off label use [Recovered/Resolved]
